FAERS Safety Report 4415258-2 (Version None)
Quarter: 2004Q3

REPORT INFORMATION
  Report Type: 
  Country: None (occurrence: None)
  Receive Date: 20040729
  Receipt Date: 20040721
  Transmission Date: 20050211
  Serious: Yes (Hospitalization)
  Sender: FDA-Public Use
  Company Number: 2004-07-0964

PATIENT
  Age: 64 Year
  Sex: Male
  Weight: 63 kg

DRUGS (3)
  1. TEMODAL [Suspect]
     Indication: LYMPHOMA
     Dosage: 170 MG QD ORAL
     Route: 048
     Dates: start: 20040416, end: 20040420
  2. METHOTREXATE [Suspect]
     Indication: LYMPHOMA
     Dosage: 5 MG INTRAVENOUS
     Route: 042
     Dates: start: 20040416, end: 20040416
  3. FOLINIC ACID [Concomitant]

REACTIONS (2)
  - DIALYSIS [None]
  - RENAL FAILURE ACUTE [None]
